FAERS Safety Report 7663285 (Version 5)
Quarter: 2013Q3

REPORT INFORMATION
  Report Type: Report from Study
  Country: FR (occurrence: FR)
  Receive Date: 20101110
  Receipt Date: 20130827
  Transmission Date: 20140515
  Serious: Yes (Other)
  Sender: FDA-Public Use
  Company Number: FR-BRISTOL-MYERS SQUIBB COMPANY-15361140

PATIENT
  Age: 29 Year
  Sex: Female

DRUGS (8)
  1. APIXABAN [Suspect]
     Indication: EMBOLISM
     Route: 048
     Dates: start: 20101021, end: 20101022
  2. PLACEBO [Suspect]
     Indication: EMBOLISM
     Dosage: WITH ENOX: SC  END DATE 22OCT10.?WITH API: ORAL END DATE 22OCT10?WITH WAR: ORAL END DATE 21OCT10
     Dates: start: 20101021, end: 201010
  3. ABILIFY [Suspect]
  4. IXEL [Suspect]
  5. PROPRANOLOL [Concomitant]
  6. LEPTICUR [Concomitant]
  7. LEVOTHYROXINE [Concomitant]
  8. INEXIUM [Concomitant]
     Dates: start: 20101021

REACTIONS (1)
  - Mental disorder [Recovered/Resolved]
